FAERS Safety Report 6079422-1 (Version None)
Quarter: 2009Q1

REPORT INFORMATION
  Report Type: 
  Country: None (occurrence: None)
  Receive Date: 20090216
  Receipt Date: 20090210
  Transmission Date: 20090719
  Serious: Yes (Life-Threatening, Hospitalization, Other)
  Sender: FDA-Public Use
  Company Number: GB-WYE-G02922609

PATIENT
  Sex: Male
  Weight: 88 kg

DRUGS (22)
  1. RAPAMUNE [Suspect]
     Indication: RENAL TRANSPLANT
     Dosage: 4 MG FREQUENCY UNKNOWN
     Route: 048
     Dates: start: 20080930
  2. RAPAMUNE [Suspect]
     Dosage: 2 MG FREQUENCY UNKNOWN
     Route: 048
  3. RAPAMUNE [Suspect]
     Dates: end: 20080201
  4. BISOPROLOL [Concomitant]
  5. SERETIDE [Concomitant]
     Route: 055
  6. COMBIVENT [Concomitant]
     Route: 055
  7. SALBUTAMOL [Concomitant]
     Route: 055
  8. CODEINE [Concomitant]
  9. NOVOLOG MIX 70/30 [Concomitant]
     Dosage: 20 UNIT EVERY 1 DAY
  10. PREDNISOLONE [Concomitant]
  11. LANSOPRAZOLE [Concomitant]
  12. FRUSEMIDE [Concomitant]
  13. SIMVASTATIN [Concomitant]
  14. ASPIRIN [Concomitant]
  15. MOXONIDINE [Concomitant]
  16. FERROUS SULFATE TAB [Concomitant]
  17. MORPHINE [Concomitant]
     Dosage: 3 MG FREQUENCY UNKNOWN
  18. AUGMENTIN '125' [Suspect]
     Indication: COUGH
     Dosage: 625 MG FREQUENCY UNKNOWN
     Dates: start: 20081229
  19. TAZOCIN [Suspect]
     Dosage: UNKNOWN
     Dates: start: 20080101
  20. CO-TRIMOXAZOLE [Suspect]
     Dosage: UNKNOWN
     Route: 042
     Dates: start: 20080101
  21. AZITHROMYCIN [Suspect]
     Dosage: 500 MG FREQUENCY UNKNOWN
     Dates: start: 20090112, end: 20090114
  22. PERINDOPRIL ERBUMINE [Concomitant]

REACTIONS (9)
  - BLOOD LACTATE DEHYDROGENASE INCREASED [None]
  - CLOSTRIDIAL INFECTION [None]
  - COLITIS [None]
  - DEHYDRATION [None]
  - IMMUNOSUPPRESSANT DRUG LEVEL INCREASED [None]
  - LOWER RESPIRATORY TRACT INFECTION [None]
  - PNEUMONIA [None]
  - RENAL FAILURE ACUTE [None]
  - WEIGHT DECREASED [None]
